FAERS Safety Report 8508219-5 (Version None)
Quarter: 2012Q2

REPORT INFORMATION
  Report Type: 
  Country: None (occurrence: None)
  Receive Date: 20120405
  Receipt Date: 20080619
  Transmission Date: 20120825
  Serious: Yes (Other)
  Sender: FDA-Public Use
  Company Number: PHEH2008US05123

PATIENT
  Age: 66 Year
  Sex: Female

DRUGS (7)
  1. VITAMIN D [Concomitant]
  2. TEKTURNA [Concomitant]
  3. RECLAST [Suspect]
     Indication: OSTEOPOROSIS
     Dosage: 5 MG IV YEARLY, INFUSION
     Route: 042
     Dates: start: 20071210
  4. JANUVIA [Concomitant]
  5. CALCIUM CARBONATE [Concomitant]
  6. DIOVAN [Concomitant]
  7. GLUCOPHAGE [Concomitant]

REACTIONS (2)
  - PAIN IN JAW [None]
  - DENTAL CARE [None]
